FAERS Safety Report 20841497 (Version 1)
Quarter: 2022Q2

REPORT INFORMATION
  Report Type: Spontaneous
  Country: AU (occurrence: AU)
  Receive Date: 20220518
  Receipt Date: 20220518
  Transmission Date: 20220721
  Serious: Yes (Death, Hospitalization, Other)
  Sender: FDA-Public Use
  Company Number: AU-STRIDES ARCOLAB LIMITED-2022SP005602

PATIENT
  Sex: Male

DRUGS (8)
  1. ETOPOSIDE [Suspect]
     Active Substance: ETOPOSIDE
     Indication: Osteosarcoma metastatic
     Dosage: 100 MILLIGRAM/SQ. METER PER DAY, ADMINISTERED ON DAY 1-5 OF A 3 WEEKLY CHEMOTHERAPY CYCLE
     Route: 065
  2. ETOPOSIDE [Suspect]
     Active Substance: ETOPOSIDE
     Dosage: UNK, TREATMENT RE-INITIATED AND ADMINISTERED AT AN 80% REDUCED DOSE
     Route: 065
  3. METHOTREXATE [Suspect]
     Active Substance: METHOTREXATE
     Indication: Osteosarcoma
     Dosage: UNK
     Route: 065
  4. CISPLATIN [Suspect]
     Active Substance: CISPLATIN
     Indication: Osteosarcoma
     Dosage: UNK
     Route: 065
  5. IFOSFAMIDE [Suspect]
     Active Substance: IFOSFAMIDE
     Indication: Osteosarcoma metastatic
     Dosage: 1800 MILLIGRAM/SQ. METER PER DAY, ADMINISTERED ON DAY 1-5 OF A 3 WEEKLY CHEMOTHERAPY CYCLE
     Route: 065
  6. IFOSFAMIDE [Suspect]
     Active Substance: IFOSFAMIDE
     Dosage: UNK, TREATMENT RE-INITIATED AND ADMINISTERED AT AN 80% REDUCED DOSE
     Route: 065
  7. CABOZANTINIB [Suspect]
     Active Substance: CABOZANTINIB
     Indication: Osteosarcoma metastatic
     Dosage: UNK
     Route: 065
  8. DOXORUBICIN [Concomitant]
     Active Substance: DOXORUBICIN
     Indication: Osteosarcoma
     Dosage: UNK
     Route: 065

REACTIONS (9)
  - Intestinal obstruction [Fatal]
  - Tumour necrosis [Recovered/Resolved]
  - Intestinal perforation [Recovered/Resolved]
  - Tumour lysis syndrome [Recovered/Resolved]
  - Neutropenic sepsis [Recovered/Resolved]
  - Bacteroides infection [Unknown]
  - Escherichia infection [Unknown]
  - Drug ineffective for unapproved indication [Unknown]
  - Off label use [Unknown]
